FAERS Safety Report 9205234 (Version 1)
Quarter: 2013Q2

REPORT INFORMATION
  Report Type: Spontaneous
  Country: US (occurrence: US)
  Receive Date: 20130402
  Receipt Date: 20130402
  Transmission Date: 20140414
  Serious: Yes (Other)
  Sender: FDA-Public Use
  Company Number: PHEH2013US007456

PATIENT
  Age: 50 Year
  Sex: Male

DRUGS (1)
  1. MYFORTIC [Suspect]

REACTIONS (2)
  - Thrombotic microangiopathy [Unknown]
  - Necrosis [Unknown]
